FAERS Safety Report 9764106 (Version 1)
Quarter: 2013Q4

REPORT INFORMATION
  Report Type: Spontaneous
  Country: DE (occurrence: US)
  Receive Date: 20131216
  Receipt Date: 20131216
  Transmission Date: 20140711
  Serious: No
  Sender: FDA-Public Use
  Company Number: DE-BIOGENIDEC-2013BI115263

PATIENT
  Sex: Female

DRUGS (1)
  1. TECFIDERA [Suspect]
     Indication: PRODUCT USED FOR UNKNOWN INDICATION

REACTIONS (7)
  - Pain in extremity [Unknown]
  - Tremor [Unknown]
  - Balance disorder [Unknown]
  - Asthenia [Unknown]
  - Aphasia [Unknown]
  - Vision blurred [Unknown]
  - Multiple sclerosis relapse [Unknown]
